FAERS Safety Report 18702062 (Version 1)
Quarter: 2021Q1

REPORT INFORMATION
  Report Type: Spontaneous
  Country: US (occurrence: US)
  Receive Date: 20210105
  Receipt Date: 20210105
  Transmission Date: 20210419
  Serious: Yes (Disabling)
  Sender: FDA-Public Use
  Company Number: None

PATIENT
  Age: 49 Year
  Sex: Female
  Weight: 56.7 kg

DRUGS (4)
  1. ELECTROLYTE REPLACEMENT [Concomitant]
  2. MULTIVITAMIN [Concomitant]
     Active Substance: VITAMINS
  3. GADAVIST [Suspect]
     Active Substance: GADOBUTROL
     Indication: SCAN WITH CONTRAST
     Route: 042
     Dates: start: 20201231, end: 20201231
  4. VITAMIN D + K [Concomitant]

REACTIONS (5)
  - Pain [None]
  - Paraesthesia [None]
  - Feeling hot [None]
  - Tremor [None]
  - Burning sensation [None]

NARRATIVE: CASE EVENT DATE: 20210101
